FAERS Safety Report 22146500 (Version 10)
Quarter: 2023Q4

REPORT INFORMATION
  Report Type: Report from Study
  Country: US (occurrence: US)
  Receive Date: 20230328
  Receipt Date: 20231026
  Transmission Date: 20240109
  Serious: Yes (Life-Threatening, Hospitalization, Other)
  Sender: FDA-Public Use
  Company Number: US-002147023-NVSC2023US067955

PATIENT
  Age: 58 Year
  Sex: Female
  Weight: 51.3 kg

DRUGS (58)
  1. SPARTALIZUMAB [Suspect]
     Active Substance: SPARTALIZUMAB
     Indication: Pancreatic carcinoma metastatic
     Dosage: 400 MG, QMO
     Route: 042
     Dates: start: 20230202
  2. SPARTALIZUMAB [Suspect]
     Active Substance: SPARTALIZUMAB
     Indication: Pancreatic carcinoma
     Dosage: 400 MG, QMO
     Route: 042
     Dates: start: 20230203, end: 20230303
  3. SPARTALIZUMAB [Suspect]
     Active Substance: SPARTALIZUMAB
     Dosage: 400 MG, QMO, MOST RECENT DOSE
     Route: 042
     Dates: start: 20230407, end: 202304
  4. SPARTALIZUMAB [Suspect]
     Active Substance: SPARTALIZUMAB
     Dosage: 400 MG, QMO
     Route: 042
     Dates: start: 20230421, end: 20230512
  5. SPARTALIZUMAB [Suspect]
     Active Substance: SPARTALIZUMAB
     Dosage: 400 MG, QMO
     Route: 042
     Dates: start: 20230407
  6. SPARTALIZUMAB [Suspect]
     Active Substance: SPARTALIZUMAB
     Dosage: 400 MG, QMO
     Route: 042
     Dates: start: 20230210
  7. SPARTALIZUMAB [Suspect]
     Active Substance: SPARTALIZUMAB
     Dosage: 400 MG, QMO
     Route: 042
     Dates: start: 20230217
  8. ILARIS [Suspect]
     Active Substance: CANAKINUMAB
     Indication: Pancreatic carcinoma metastatic
     Dosage: 250 MG, QMO
     Route: 058
     Dates: start: 20230202
  9. ILARIS [Suspect]
     Active Substance: CANAKINUMAB
     Indication: Pancreatic carcinoma
     Dosage: 250 MG, QMO
     Route: 058
     Dates: start: 20230203, end: 20230303
  10. ILARIS [Suspect]
     Active Substance: CANAKINUMAB
     Dosage: 250 MG, QMO
     Route: 058
     Dates: start: 20230407
  11. ILARIS [Suspect]
     Active Substance: CANAKINUMAB
     Dosage: UNK
     Route: 058
     Dates: start: 20230421
  12. ILARIS [Suspect]
     Active Substance: CANAKINUMAB
     Dosage: 250 MG, QMO
     Route: 065
     Dates: start: 20230614
  13. ILARIS [Suspect]
     Active Substance: CANAKINUMAB
     Dosage: 50 MG, SYRINGE
     Route: 065
  14. ILARIS [Suspect]
     Active Substance: CANAKINUMAB
     Dosage: 200 MG, SYRINGE
     Route: 065
  15. ILARIS [Suspect]
     Active Substance: CANAKINUMAB
     Dosage: 250 MG, QMO
     Route: 058
     Dates: start: 20230714, end: 20230811
  16. ILARIS [Suspect]
     Active Substance: CANAKINUMAB
     Dosage: 250 MG, QMO
     Route: 058
     Dates: start: 20230825
  17. ILARIS [Suspect]
     Active Substance: CANAKINUMAB
     Dosage: 250 MG, QMO
     Route: 058
     Dates: start: 20230217
  18. ILARIS [Suspect]
     Active Substance: CANAKINUMAB
     Dosage: 250 MG, QMO
     Route: 058
     Dates: start: 20230519
  19. PACLITAXEL [Suspect]
     Active Substance: PACLITAXEL
     Indication: Pancreatic carcinoma metastatic
     Dosage: 1217 MG (THREE TIMES PER MONTH (STRENGTH 125 MG/SQ METER
     Route: 042
     Dates: start: 20230202
  20. PACLITAXEL [Suspect]
     Active Substance: PACLITAXEL
     Dosage: 150 MG, 3 WEEKS ON, 1 WEEK OFF
     Route: 042
     Dates: start: 20230203
  21. PACLITAXEL [Suspect]
     Active Substance: PACLITAXEL
     Dosage: UNK
     Route: 065
     Dates: start: 20230310
  22. PACLITAXEL [Suspect]
     Active Substance: PACLITAXEL
     Dosage: 120 MG, 3 WEEKS ON, 1 WEEK OFF, MOST RECENT DOSE
     Route: 065
     Dates: start: 20230628
  23. PACLITAXEL [Suspect]
     Active Substance: PACLITAXEL
     Dosage: 1217 MG, 3 WEEKS ON, 1 WEEK OFF
     Route: 042
     Dates: start: 20230203, end: 20230210
  24. PACLITAXEL [Suspect]
     Active Substance: PACLITAXEL
     Dosage: 1217 MG, 3 WEEKS ON, 1 WEEK OFF
     Route: 042
     Dates: start: 20230217
  25. PACLITAXEL [Suspect]
     Active Substance: PACLITAXEL
     Dosage: 1217 MG, 3 WEEKS ON, 1 WEEK OFF
     Route: 042
     Dates: start: 20230503
  26. PACLITAXEL [Suspect]
     Active Substance: PACLITAXEL
     Dosage: 1217 MG, 3 WEEKS ON, 1 WEEK OFF
     Route: 042
     Dates: start: 20230519
  27. GEMCITABINE [Suspect]
     Active Substance: GEMCITABINE
     Indication: Pancreatic carcinoma metastatic
     Dosage: 150 MG (THREE TIMES IN MONTH) (STRENGTH: 1000 MG SQ METER)
     Route: 042
     Dates: start: 20230202
  28. GEMCITABINE [Suspect]
     Active Substance: GEMCITABINE
     Indication: Pancreatic carcinoma
     Dosage: 150 MG 3 WEEKS ON, 1 WEEK OFF, MOST RECENT DOSE
     Route: 042
     Dates: start: 20230203, end: 20230310
  29. GEMCITABINE [Suspect]
     Active Substance: GEMCITABINE
     Dosage: 913 MG, Q3MO
     Route: 042
  30. GEMCITABINE [Suspect]
     Active Substance: GEMCITABINE
     Dosage: 150 MG 3 WEEKS ON, 1 WEEK OFF, MOST RECENT DOSE
     Route: 017
     Dates: start: 20230324
  31. GEMCITABINE [Suspect]
     Active Substance: GEMCITABINE
     Dosage: 150 MG, 3 WEEKS ON, 1 WEEK OFF, MOST RECENT DOSE
     Route: 042
     Dates: start: 20230421
  32. GEMCITABINE [Suspect]
     Active Substance: GEMCITABINE
     Dosage: 973 MG,  3 WEEKS ON, 1 WEEK OFF, MOST RECENT DOSE
     Route: 042
     Dates: start: 20230628, end: 20230811
  33. GEMCITABINE [Suspect]
     Active Substance: GEMCITABINE
     Dosage: 973 MG,  3 WEEKS ON, 1 WEEK OFF, MOST RECENT DOSE
     Route: 042
     Dates: start: 20230825
  34. GEMCITABINE [Suspect]
     Active Substance: GEMCITABINE
     Dosage: 150 MG, 3 WEEKS ON, 1 WEEK OFF, MOST RECENT DOSE
     Route: 042
     Dates: start: 20230210
  35. GEMCITABINE [Suspect]
     Active Substance: GEMCITABINE
     Dosage: 150 MG, 3 WEEKS ON, 1 WEEK OFF, MOST RECENT DOSE
     Route: 042
     Dates: start: 20230217
  36. GEMCITABINE [Suspect]
     Active Substance: GEMCITABINE
     Dosage: 150 MG, 3 WEEKS ON, 1 WEEK OFF, MOST RECENT DOSE
     Route: 042
     Dates: start: 20230503
  37. GEMCITABINE [Suspect]
     Active Substance: GEMCITABINE
     Dosage: 150 MG, 3 WEEKS ON, 1 WEEK OFF, MOST RECENT DOSE
     Route: 042
     Dates: start: 20230519
  38. ABRAXANE [Suspect]
     Active Substance: PACLITAXEL
     Indication: Pancreatic carcinoma
     Dosage: 1217 MG, 3 WEEKS ON, 1 WEEK OFF
     Route: 042
     Dates: start: 20230203
  39. ABRAXANE [Suspect]
     Active Substance: PACLITAXEL
     Dosage: 115 MG, Q3MO
     Route: 042
  40. ABRAXANE [Suspect]
     Active Substance: PACLITAXEL
     Dosage: 1217 MG, 3 WEEKS ON, 1 WEEK OFF
     Route: 042
     Dates: start: 20230421
  41. ABRAXANE [Suspect]
     Active Substance: PACLITAXEL
     Dosage: 115 MG, Q3MO (LAST ADMINISTRATION)
     Route: 042
     Dates: start: 20230310
  42. ABRAXANE [Suspect]
     Active Substance: PACLITAXEL
     Dosage: 120 MG, 3 WEEKS ON, 1 WEEK OFF, MOST RECENT DOSE
     Route: 042
     Dates: start: 20230628
  43. ABRAXANE [Suspect]
     Active Substance: PACLITAXEL
     Dosage: 120 MG, 3 WEEKS ON, 1 WEEK OFF, MOST RECENT DOSE
     Route: 042
     Dates: start: 20230728
  44. HYOSCYAMINE [Concomitant]
     Active Substance: HYOSCYAMINE
     Indication: Gastrooesophageal reflux disease
     Dosage: 0.125 UG, QD
     Route: 048
     Dates: start: 20221102, end: 20230503
  45. OMEPRAZOLE [Concomitant]
     Active Substance: OMEPRAZOLE
     Indication: Gastrooesophageal reflux disease
     Dosage: 40 MG, QD
     Route: 048
     Dates: start: 20230120
  46. VANCOMYCIN [Concomitant]
     Active Substance: VANCOMYCIN
     Indication: Sepsis
     Dosage: 1 DOSAGE FORM (1250 MG)
     Route: 065
  47. VANCOMYCIN [Concomitant]
     Active Substance: VANCOMYCIN
     Dosage: 1250 MG, ONCE/SINGLE
     Route: 042
     Dates: start: 20230804, end: 20230805
  48. ZOSYN [Concomitant]
     Active Substance: PIPERACILLIN SODIUM\TAZOBACTAM SODIUM
     Indication: Sepsis
     Dosage: 1 DOSAGE FORM
     Route: 065
  49. ZOSYN [Concomitant]
     Active Substance: PIPERACILLIN SODIUM\TAZOBACTAM SODIUM
     Dosage: 4500 MG, ONCE/SINGLE
     Route: 042
     Dates: start: 20230804, end: 20230804
  50. ZOSYN [Concomitant]
     Active Substance: PIPERACILLIN SODIUM\TAZOBACTAM SODIUM
     Dosage: 500 MG, QD
     Route: 042
     Dates: start: 20230503, end: 20230505
  51. CREON [Concomitant]
     Active Substance: PANCRELIPASE AMYLASE\PANCRELIPASE LIPASE\PANCRELIPASE PROTEASE
     Indication: Pancreatic failure
     Dosage: 48000 UNITS, TID
     Route: 048
     Dates: start: 20230203
  52. CREON [Concomitant]
     Active Substance: PANCRELIPASE AMYLASE\PANCRELIPASE LIPASE\PANCRELIPASE PROTEASE
     Dosage: UNK,  36000 LU 2 CAPSULES PER MEAL AND 1 CAPSULE PER SNACK
     Route: 048
     Dates: start: 20230303
  53. LASIX [Concomitant]
     Active Substance: FUROSEMIDE
     Indication: Swelling
     Dosage: 20 MG, PRN
     Route: 048
     Dates: start: 20230104
  54. PREVACID [Concomitant]
     Active Substance: LANSOPRAZOLE
     Indication: Gastrooesophageal reflux disease
     Dosage: 30 MG, QD (BEFORE BREAKFAST)
     Route: 048
     Dates: start: 20230316
  55. ONDANSETRON [Concomitant]
     Active Substance: ONDANSETRON
     Indication: Nausea
     Dosage: 4 MG, Q6H
     Route: 048
     Dates: start: 20230106
  56. ZITHROMAX [Concomitant]
     Active Substance: AZITHROMYCIN DIHYDRATE
     Indication: Product used for unknown indication
     Dosage: 500 MG
     Route: 042
     Dates: start: 20230503, end: 20230505
  57. SULFAMETHOXAZOLE AND TRIMETHOPRIM [Concomitant]
     Active Substance: SULFAMETHOXAZOLE\TRIMETHOPRIM
     Indication: Product used for unknown indication
     Dosage: 800-160 MG 3X PER WEEK
     Route: 065
     Dates: start: 20230505, end: 20230908
  58. SODIUM CHLORIDE [Concomitant]
     Active Substance: SODIUM CHLORIDE
     Indication: Product used for unknown indication
     Dosage: 1 G, TID
     Route: 065
     Dates: start: 20230507, end: 20230510

REACTIONS (29)
  - White blood cell count decreased [Recovered/Resolved]
  - Pneumonitis [Recovered/Resolved]
  - Colitis [Recovered/Resolved]
  - Abdominal distension [Unknown]
  - Diarrhoea [Recovered/Resolved]
  - Urinary tract infection [Recovered/Resolved]
  - Clostridium difficile colitis [Recovered/Resolved]
  - Biliary dilatation [Unknown]
  - Pancreatic duct dilatation [Unknown]
  - Ascites [Unknown]
  - Raoultella ornithinolytica infection [Unknown]
  - Small intestinal obstruction [Unknown]
  - Faecaloma [Unknown]
  - Obstructive airways disorder [Unknown]
  - Nodule [Unknown]
  - Neutrophil count decreased [Unknown]
  - Dyspnoea [Unknown]
  - Asthenia [Unknown]
  - Cough [Unknown]
  - Dysuria [Unknown]
  - Abdominal pain [Unknown]
  - Pyrexia [Recovering/Resolving]
  - Diarrhoea [Unknown]
  - Oedema [Unknown]
  - Gastritis [Unknown]
  - Bacterial infection [Recovering/Resolving]
  - Constipation [Unknown]
  - Ill-defined disorder [Unknown]
  - Product use in unapproved indication [Unknown]

NARRATIVE: CASE EVENT DATE: 20230210
